FAERS Safety Report 6013664-6 (Version None)
Quarter: 2008Q4

REPORT INFORMATION
  Report Type: 
  Country: None (occurrence: None)
  Receive Date: 20081218
  Receipt Date: 20081218
  Transmission Date: 20090506
  Serious: Yes (Other)
  Sender: FDA-Public Use
  Company Number: None

PATIENT
  Sex: Male
  Weight: 68.0396 kg

DRUGS (1)
  1. DILTIAZEM CD 120 MG APOTEX [Suspect]
     Indication: MYOCARDIAL INFARCTION
     Dosage: 120 MG DAILY ORALLY
     Route: 048
     Dates: start: 20080920, end: 20080923

REACTIONS (4)
  - ASTHENIA [None]
  - DYSPNOEA [None]
  - HYPOAESTHESIA [None]
  - PARAESTHESIA [None]
